FAERS Safety Report 17649231 (Version 1)
Quarter: 2020Q2

REPORT INFORMATION
  Report Type: Spontaneous
  Country: US (occurrence: US)
  Receive Date: 20200409
  Receipt Date: 20200409
  Transmission Date: 20200713
  Serious: No
  Sender: FDA-Public Use
  Company Number: US-EMCURE PHARMACEUTICALS LTD-2019-EPL-0697

PATIENT

DRUGS (1)
  1. BICNU [Suspect]
     Active Substance: CARMUSTINE

REACTIONS (1)
  - Product administration error [Unknown]
